FAERS Safety Report 24560044 (Version 2)
Quarter: 2025Q3

REPORT INFORMATION
  Report Type: Report from Study
  Country: US (occurrence: US)
  Receive Date: 20241029
  Receipt Date: 20250803
  Transmission Date: 20251020
  Serious: Yes (Hospitalization, Other)
  Sender: ALEXION PHARMACEUTICALS
  Company Number: US-AstraZeneca-CH-00713726A

PATIENT
  Sex: Male

DRUGS (1)
  1. CALQUENCE [Suspect]
     Active Substance: ACALABRUTINIB

REACTIONS (5)
  - Sepsis [Recovering/Resolving]
  - Lymphoma [Recovering/Resolving]
  - Renal disorder [Recovering/Resolving]
  - Gout [Recovering/Resolving]
  - Hypotension [Recovering/Resolving]
